APPROVED DRUG PRODUCT: OXSORALEN-ULTRA
Active Ingredient: METHOXSALEN
Strength: 10MG
Dosage Form/Route: CAPSULE;ORAL
Application: N019600 | Product #001 | TE Code: AB
Applicant: BAUSCH HEALTH AMERICAS INC
Approved: Oct 30, 1986 | RLD: Yes | RS: Yes | Type: RX